FAERS Safety Report 19076967 (Version 1)
Quarter: 2021Q1

REPORT INFORMATION
  Report Type: Spontaneous
  Country: US (occurrence: US)
  Receive Date: 20210330
  Receipt Date: 20210330
  Transmission Date: 20210420
  Serious: Yes (Other)
  Sender: FDA-Public Use
  Company Number: None

PATIENT
  Age: 53 Year
  Sex: Female
  Weight: 72.45 kg

DRUGS (9)
  1. LEVOTHYROXINE 50 MCG [Concomitant]
     Active Substance: LEVOTHYROXINE
  2. HUMIRA [Suspect]
     Active Substance: ADALIMUMAB
     Indication: PSORIASIS
     Dosage: ?          OTHER FREQUENCY:EVERY OTHER WEEK;?
     Route: 058
     Dates: start: 20210316, end: 20210330
  3. METOPROLOL SUCCINATE ER 25 MG [Concomitant]
     Active Substance: METOPROLOL SUCCINATE
  4. ALPRAZOLAM ER 0.5 MG [Concomitant]
  5. ATORVASTATIN 40 [Concomitant]
     Active Substance: ATORVASTATIN
  6. COLLAGEN SUPPLEMENT [Concomitant]
  7. VALSARTAN 320 MG [Concomitant]
     Active Substance: VALSARTAN
  8. FLUOCINOLONE OINTMENT 0.01% [Concomitant]
  9. HYDRDOXYZINE PAMOATE 25 MG [Concomitant]

REACTIONS (1)
  - Rash erythematous [None]

NARRATIVE: CASE EVENT DATE: 20210330
